FAERS Safety Report 9188681 (Version 3)
Quarter: 2014Q1

REPORT INFORMATION
  Report Type: Spontaneous
  Country: US (occurrence: US)
  Receive Date: 20130325
  Receipt Date: 20140211
  Transmission Date: 20141002
  Serious: Yes (Other)
  Sender: FDA-Public Use
  Company Number: US-009507513-1303USA009693

PATIENT
  Sex: Male
  Weight: 90.7 kg

DRUGS (1)
  1. PROPECIA [Suspect]
     Indication: ALOPECIA
     Dosage: 1 MG, UNK
     Route: 048
     Dates: start: 1998, end: 2001

REACTIONS (33)
  - Surgery [Unknown]
  - Cognitive disorder [Unknown]
  - Osteopenia [Unknown]
  - Blood testosterone decreased [Unknown]
  - Skin lesion [Unknown]
  - Back pain [Unknown]
  - Oropharyngeal pain [Unknown]
  - Ear pain [Unknown]
  - Oropharyngeal pain [Unknown]
  - Lymphadenopathy [Unknown]
  - Skin lesion [Unknown]
  - Secondary hypogonadism [Unknown]
  - Pituitary tumour benign [Unknown]
  - Lethargy [Unknown]
  - Fatigue [Unknown]
  - Myalgia [Unknown]
  - Weight increased [Unknown]
  - Major depression [Unknown]
  - Fall [Unknown]
  - Drug intolerance [Unknown]
  - Anxiety [Not Recovered/Not Resolved]
  - Road traffic accident [Unknown]
  - Anxiety disorder [Unknown]
  - Rash [Unknown]
  - Pruritus [Unknown]
  - Libido decreased [Unknown]
  - Depression [Not Recovered/Not Resolved]
  - Infertility male [Unknown]
  - Sexual dysfunction [Unknown]
  - Erectile dysfunction [Unknown]
  - Intervertebral disc protrusion [Unknown]
  - Anogenital warts [Unknown]
  - Circadian rhythm sleep disorder [Unknown]
